FAERS Safety Report 7235866-3 (Version None)
Quarter: 2011Q1

REPORT INFORMATION
  Report Type: 
  Country: None (occurrence: None)
  Receive Date: 20110120
  Receipt Date: 20110112
  Transmission Date: 20110831
  Serious: Yes (Other)
  Sender: FDA-Public Use
  Company Number: VE-ROCHE-753008

PATIENT
  Sex: Female
  Weight: 54 kg

DRUGS (1)
  1. XELODA [Suspect]
     Indication: COLON CANCER
     Dosage: STOP DATE: 13 JAN 11
     Route: 048
     Dates: start: 20101101

REACTIONS (6)
  - PLATELET COUNT DECREASED [None]
  - BURNING SENSATION [None]
  - SKIN BURNING SENSATION [None]
  - DECREASED APPETITE [None]
  - VOMITING [None]
  - THROAT IRRITATION [None]
